FAERS Safety Report 23032033 (Version 1)
Quarter: 2023Q4

REPORT INFORMATION
  Report Type: Spontaneous
  Country: US (occurrence: None)
  Receive Date: 20231003
  Receipt Date: 20231003
  Transmission Date: 20240110
  Serious: Yes (Hospitalization)
  Sender: FDA-Public Use
  Company Number: None

PATIENT
  Age: 56 Year
  Sex: Female

DRUGS (1)
  1. COSENTYX [Suspect]
     Active Substance: SECUKINUMAB
     Indication: Ankylosing spondylitis
     Dosage: 150 MG EVERY 4 WEEKS UNDHER THE SKIN
     Route: 058
     Dates: start: 202308

REACTIONS (8)
  - Ankylosing spondylitis [None]
  - Nephrolithiasis [None]
  - Urinary tract infection [None]
  - Pain in extremity [None]
  - Arthralgia [None]
  - Back pain [None]
  - Pain in extremity [None]
  - Arthralgia [None]

NARRATIVE: CASE EVENT DATE: 20230914
